FAERS Safety Report 6156976-8 (Version None)
Quarter: 2009Q2

REPORT INFORMATION
  Report Type: 
  Country: None (occurrence: None)
  Receive Date: 20090413
  Receipt Date: 20090413
  Transmission Date: 20091009
  Serious: No
  Sender: FDA-Public Use
  Company Number: None

PATIENT
  Age: 47 Year
  Sex: Female
  Weight: 85.2762 kg

DRUGS (1)
  1. TOPAMAX [Suspect]
     Indication: MIGRAINE PROPHYLAXIS
     Dosage: 50 MG. 2/DAY PO
     Route: 048
     Dates: start: 20050115, end: 20050812

REACTIONS (3)
  - NIGHT BLINDNESS [None]
  - VISUAL FIELD DEFECT [None]
  - VISUAL IMPAIRMENT [None]
